FAERS Safety Report 8953752 (Version 1)
Quarter: 2012Q4

REPORT INFORMATION
  Report Type: 
  Country: US (occurrence: US)
  Receive Date: 20121206
  Receipt Date: 20121206
  Transmission Date: 20130627
  Serious: Yes (Other)
  Sender: FDA-Public Use
  Company Number: US-ASTRAZENECA-2012SE89670

PATIENT
  Age: 73 Year
  Sex: Female
  Weight: 68 kg

DRUGS (4)
  1. SYMBICORT [Suspect]
     Indication: ASTHMA
     Dosage: 160/45 MCG TWO PUFFS BID
     Route: 055
     Dates: start: 20121125
  2. PULMICORT FLEXHALER [Suspect]
     Indication: ASTHMA
     Route: 055
     Dates: start: 2001
  3. PULMICORT FLEXHALER [Suspect]
     Indication: ASTHMA
     Route: 055
  4. FORADIL [Concomitant]
     Indication: ASTHMA
     Dosage: BID

REACTIONS (11)
  - Breast cancer [Unknown]
  - Dyspnoea [Unknown]
  - Chest pain [Unknown]
  - Malaise [Unknown]
  - Anxiety [Unknown]
  - Hypertension [Unknown]
  - Feeling abnormal [Unknown]
  - Tremor [Unknown]
  - Nausea [Unknown]
  - Drug ineffective [Unknown]
  - Intentional drug misuse [Unknown]
